FAERS Safety Report 16804812 (Version 1)
Quarter: 2019Q3

REPORT INFORMATION
  Report Type: Spontaneous
  Country: US (occurrence: US)
  Receive Date: 20190723
  Receipt Date: 20190723
  Transmission Date: 20191005
  Serious: No
  Sender: FDA-Public Use
  Company Number: None

PATIENT
  Age: 73 Year
  Sex: Male
  Weight: 85 kg

DRUGS (6)
  1. LISINOPRIL. [Concomitant]
     Active Substance: LISINOPRIL
  2. INTRON A [Suspect]
     Active Substance: INTERFERON ALFA-2B
     Dates: end: 20120723
  3. MELOXICAM. [Concomitant]
     Active Substance: MELOXICAM
  4. OMEPRAZOLE. [Suspect]
     Active Substance: OMEPRAZOLE
  5. HYDROCHLOROTHIAZIDE. [Concomitant]
     Active Substance: HYDROCHLOROTHIAZIDE
  6. PRAVASTATIN. [Concomitant]
     Active Substance: PRAVASTATIN

REACTIONS (1)
  - Hypoglycaemia [None]

NARRATIVE: CASE EVENT DATE: 20120516
